FAERS Safety Report 19257362 (Version 1)
Quarter: 2021Q2

REPORT INFORMATION
  Report Type: Spontaneous
  Country: US (occurrence: US)
  Receive Date: 20210513
  Receipt Date: 20210513
  Transmission Date: 20210717
  Serious: No
  Sender: FDA-Public Use
  Company Number: US-ASTRAZENECA-2021A328660

PATIENT
  Age: 62 Year
  Sex: Male
  Weight: 133.8 kg

DRUGS (2)
  1. BYDUREON [Suspect]
     Active Substance: EXENATIDE
     Indication: TYPE 2 DIABETES MELLITUS
     Route: 058
  2. BYDUREON BCISE [Suspect]
     Active Substance: EXENATIDE
     Indication: TYPE 2 DIABETES MELLITUS
     Route: 058
     Dates: start: 202101

REACTIONS (9)
  - Renal disorder [Recovered/Resolved]
  - Device malfunction [Unknown]
  - Dehydration [Recovered/Resolved]
  - Sleep apnoea syndrome [Recovering/Resolving]
  - Weight decreased [Unknown]
  - Nodule [Not Recovered/Not Resolved]
  - Drug delivery system issue [Unknown]
  - Blood creatine increased [Recovered/Resolved]
  - Wrong technique in device usage process [Unknown]

NARRATIVE: CASE EVENT DATE: 2020
